FAERS Safety Report 9161472 (Version 1)
Quarter: 2013Q1

REPORT INFORMATION
  Report Type: Spontaneous
  Country: US (occurrence: US)
  Receive Date: 20130313
  Receipt Date: 20130313
  Transmission Date: 20140127
  Serious: Yes (Other)
  Sender: FDA-Public Use
  Company Number: US-009507513-1303USA000825

PATIENT
  Age: 98 Year
  Sex: Female

DRUGS (5)
  1. SIMVASTATIN TABLETS, USP [Suspect]
     Indication: HYPERLIPIDAEMIA
     Dosage: UNK
     Route: 048
  2. LABETALOL HYDROCHLORIDE [Concomitant]
  3. ASPIRIN [Concomitant]
  4. CALCIUM (UNSPECIFIED) [Concomitant]
  5. VITAMIN D (UNSPECIFIED) [Concomitant]

REACTIONS (1)
  - Rhabdomyolysis [Recovering/Resolving]
